FAERS Safety Report 9472185 (Version 1)
Quarter: 2013Q3

REPORT INFORMATION
  Report Type: Spontaneous
  Country: US (occurrence: None)
  Receive Date: 20130821
  Receipt Date: 20130821
  Transmission Date: 20140515
  Serious: No
  Sender: FDA-Public Use
  Company Number: None

PATIENT
  Age: 80 Year
  Sex: Male

DRUGS (1)
  1. ENBREL [Suspect]
     Dosage: 50MG  QW  SQ
     Route: 058
     Dates: start: 20130212, end: 201307

REACTIONS (3)
  - Rash [None]
  - Myalgia [None]
  - Mood swings [None]
